FAERS Safety Report 6974090-6 (Version None)
Quarter: 2010Q3

REPORT INFORMATION
  Report Type: 
  Country: None (occurrence: None)
  Receive Date: 20100909
  Receipt Date: 20100804
  Transmission Date: 20110219
  Serious: Yes (Other)
  Sender: FDA-Public Use
  Company Number: US-BAYER-201024206NA

PATIENT
  Age: 26 Year
  Sex: Female
  Weight: 80 kg

DRUGS (11)
  1. YAZ [Suspect]
     Indication: PRODUCT USED FOR UNKNOWN INDICATION
     Route: 048
     Dates: start: 20070401, end: 20090601
  2. IBUPROFEN [Concomitant]
  3. CYCLOBENZAPRINE [Concomitant]
  4. METRONIDAZOLE [Concomitant]
  5. PROPOXYPHENE NAPSYLATE AND ACETAMINOPHEN [Concomitant]
  6. KETOCONAZOLE [Concomitant]
  7. HYDROCODONE [Concomitant]
     Dosage: DOSING: 5/50 AND 7.5/650
  8. PROMETHAZINE [Concomitant]
  9. ACETAMINOPHEN W/ CODEINE [Concomitant]
  10. MEPERITAB [Concomitant]
  11. FAMATODINE [Concomitant]

REACTIONS (5)
  - ABDOMINAL PAIN [None]
  - CHOLECYSTITIS CHRONIC [None]
  - EMOTIONAL DISTRESS [None]
  - NAUSEA [None]
  - VOMITING [None]
